FAERS Safety Report 10121129 (Version 3)
Quarter: 2015Q2

REPORT INFORMATION
  Report Type: Spontaneous
  Country: US (occurrence: US)
  Receive Date: 20140425
  Receipt Date: 20150602
  Transmission Date: 20150821
  Serious: Yes (Hospitalization, Other)
  Sender: FDA-Public Use
  Company Number: US-ABBVIE-14P-163-1228287-00

PATIENT
  Sex: Female
  Weight: 65.83 kg

DRUGS (4)
  1. SYNTHROID [Suspect]
     Active Substance: LEVOTHYROXINE SODIUM
     Indication: HYPOTHYROIDISM
     Route: 048
  2. SYNTHROID [Suspect]
     Active Substance: LEVOTHYROXINE SODIUM
     Indication: HYPOTHYROIDISM
     Dosage: TABLET 6 DAYS DAILY, 1/2 PILL 7TH DAY OF THE WEEK
     Route: 048
     Dates: start: 20140219
  3. SYNTHROID [Suspect]
     Active Substance: LEVOTHYROXINE SODIUM
     Indication: HYPOTHYROIDISM
     Route: 048
     Dates: end: 2014
  4. SYNTHROID [Suspect]
     Active Substance: LEVOTHYROXINE SODIUM
     Indication: HYPOTHYROIDISM
     Route: 065
     Dates: start: 1999, end: 2012

REACTIONS (15)
  - Atrioventricular block [Unknown]
  - Alanine aminotransferase increased [Not Recovered/Not Resolved]
  - Weight increased [Not Recovered/Not Resolved]
  - Aspartate aminotransferase increased [Not Recovered/Not Resolved]
  - Glycosylated haemoglobin increased [Not Recovered/Not Resolved]
  - Atrial fibrillation [Recovering/Resolving]
  - Vitamin D decreased [Not Recovered/Not Resolved]
  - Atrial flutter [Recovered/Resolved]
  - Malaise [Unknown]
  - Atrial fibrillation [Unknown]
  - Blood magnesium decreased [Not Recovered/Not Resolved]
  - Alopecia [Not Recovered/Not Resolved]
  - Atrial fibrillation [Unknown]
  - Palpitations [Unknown]
  - Weight decreased [Not Recovered/Not Resolved]

NARRATIVE: CASE EVENT DATE: 2001
